FAERS Safety Report 9908060 (Version 1)
Quarter: 2014Q1

REPORT INFORMATION
  Report Type: Spontaneous
  Country: US (occurrence: None)
  Receive Date: 20140212
  Receipt Date: 20140212
  Transmission Date: 20141002
  Serious: Yes (Hospitalization, Other)
  Sender: FDA-Public Use
  Company Number: None

PATIENT
  Age: 34 Year
  Sex: Female
  Weight: 47.63 kg

DRUGS (1)
  1. MICONAZOLE [Suspect]
     Indication: FUNGAL INFECTION
     Dosage: 3 APPLICATORS AT BEDTIME
     Dates: start: 20140208, end: 20140208

REACTIONS (3)
  - Pruritus [None]
  - Genital swelling [None]
  - Genital burning sensation [None]
